FAERS Safety Report 7134305-0 (Version None)
Quarter: 2010Q4

REPORT INFORMATION
  Report Type: 
  Country: None (occurrence: None)
  Receive Date: 20101203
  Receipt Date: 20101115
  Transmission Date: 20110411
  Serious: Yes (Hospitalization)
  Sender: FDA-Public Use
  Company Number: US-AMGEN-USASP2010002690

PATIENT

DRUGS (17)
  1. ENBREL [Suspect]
     Indication: RHEUMATOID ARTHRITIS
     Dosage: 50 MG, QWK
     Dates: start: 20080101
  2. ENBREL [Suspect]
     Indication: PSORIASIS
     Dosage: 50 MG, QWK
     Dates: start: 20090101, end: 20100501
  3. METHOTREXATE [Concomitant]
     Dosage: UNK UNK, QWK
  4. FUROSEMIDE [Concomitant]
     Dosage: 80 MG, QOD
  5. LYRICA [Concomitant]
     Dosage: UNK UNK, BID
  6. CALCIUM WITH VITAMIN D             /00944201/ [Concomitant]
     Dosage: 50 MG, BID
  7. FLUOCINONIDE [Concomitant]
  8. FOLIC ACID [Concomitant]
     Dosage: 1 MG, UNK
  9. METHOCARBAMOL [Concomitant]
     Dosage: 750 MG, PRN
  10. MIRALAX [Concomitant]
     Dosage: UNK UNK, PRN
  11. M.V.I. [Concomitant]
     Dosage: UNK UNK, QD
  12. OXYCODONE HCL [Concomitant]
     Dosage: 5 MG, PRN
  13. OXYCONTIN [Concomitant]
     Dosage: 80 MG, TID
  14. POTASSIUM CHLORIDE [Concomitant]
     Dosage: 40 MEQ, QD
  15. TRIAMCINOLONE [Concomitant]
     Dosage: .025 %, PRN
  16. XANAX [Concomitant]
     Dosage: 0.25 MG, PRN
  17. PREDNISONE [Concomitant]
     Dosage: 10 MG, QD

REACTIONS (9)
  - ABASIA [None]
  - DRUG INEFFECTIVE [None]
  - HYPOAESTHESIA [None]
  - PAIN IN EXTREMITY [None]
  - PARAESTHESIA [None]
  - PSORIASIS [None]
  - RHEUMATOID ARTHRITIS [None]
  - SOMNOLENCE [None]
  - SPINAL FUSION SURGERY [None]
